FAERS Safety Report 16468783 (Version 1)
Quarter: 2019Q2

REPORT INFORMATION
  Report Type: Spontaneous
  Country: US (occurrence: US)
  Receive Date: 20190514
  Receipt Date: 20190514
  Transmission Date: 20190711
  Serious: No
  Sender: FDA-Public Use
  Company Number: None

PATIENT
  Age: 38 Year
  Sex: Female

DRUGS (2)
  1. PIROXICAM. [Concomitant]
     Active Substance: PIROXICAM
  2. HUMIRA [Suspect]
     Active Substance: ADALIMUMAB
     Indication: IMMUNE SYSTEM DISORDER
     Dosage: ?          OTHER DOSE:1 PEN;?
     Route: 058
     Dates: start: 20190417

REACTIONS (1)
  - Off label use [None]

NARRATIVE: CASE EVENT DATE: 20190514
